FAERS Safety Report 6045199-9 (Version None)
Quarter: 2009Q1

REPORT INFORMATION
  Report Type: 
  Country: None (occurrence: None)
  Receive Date: 20090121
  Receipt Date: 20090115
  Transmission Date: 20090719
  Serious: Yes (Hospitalization, Other)
  Sender: FDA-Public Use
  Company Number: CA-ASTRAZENECA-2009UW01406

PATIENT
  Sex: Female

DRUGS (2)
  1. TENORMIN [Suspect]
     Route: 065
  2. DIOVAN [Suspect]
     Route: 065

REACTIONS (3)
  - APPENDICITIS [None]
  - INTESTINAL OBSTRUCTION [None]
  - PERITONITIS [None]
